FAERS Safety Report 4632333-8 (Version None)
Quarter: 2005Q2

REPORT INFORMATION
  Report Type: 
  Country: None (occurrence: None)
  Receive Date: 20050401
  Receipt Date: 20040603
  Transmission Date: 20051028
  Serious: Yes (Hospitalization)
  Sender: FDA-Public Use
  Company Number: 04P-163-0262787-00

PATIENT
  Age: 41 Year
  Sex: Male

DRUGS (4)
  1. DEPAKOTE [Suspect]
     Dosage: 1000 MG, 1 IN 1 D, PER ORAL
     Route: 048
     Dates: end: 20040101
  2. CLOZAPINE [Suspect]
     Dosage: 500 MG, 1 IN 1 D, PER ORAL
     Route: 048
     Dates: start: 20020101, end: 20040101
  3. CLOZAPINE [Suspect]
     Dosage: 500 MG, 1 IN 1 D, PER ORAL
     Route: 048
     Dates: start: 20040101
  4. TAGAMET [Concomitant]

REACTIONS (1)
  - THROMBOCYTOPENIA [None]
